FAERS Safety Report 7331387-8 (Version None)
Quarter: 2011Q1

REPORT INFORMATION
  Report Type: 
  Country: None (occurrence: None)
  Receive Date: 20110304
  Receipt Date: 20110221
  Transmission Date: 20110831
  Serious: Yes (Other)
  Sender: FDA-Public Use
  Company Number: FR-BAYER-201044036GPV

PATIENT
  Sex: Male
  Weight: 63 kg

DRUGS (6)
  1. SORAFENIB [Suspect]
     Route: 048
  2. AMLOR [Concomitant]
  3. BISOPROLOL FUMARATE [Concomitant]
  4. COTAREG [Concomitant]
  5. BEDELIX [Concomitant]
     Dosage: UNK
     Dates: start: 20100812
  6. IMODIUM [Concomitant]

REACTIONS (1)
  - ATRIAL FIBRILLATION [None]
